FAERS Safety Report 16383180 (Version 1)
Quarter: 2019Q2

REPORT INFORMATION
  Report Type: Spontaneous
  Country: US (occurrence: US)
  Receive Date: 20190426
  Receipt Date: 20190426
  Transmission Date: 20190711
  Serious: No
  Sender: FDA-Public Use
  Company Number: None

PATIENT
  Age: 74 Year
  Sex: Female
  Weight: 94.35 kg

DRUGS (10)
  1. PRALUENT [Suspect]
     Active Substance: ALIROCUMAB
     Indication: BLOOD CHOLESTEROL INCREASED
     Dosage: ?          QUANTITY:1 DF DOSAGE FORM;OTHER ROUTE:INJECTION?
     Dates: start: 20190411, end: 20190411
  2. NIFEDIPINE. [Concomitant]
     Active Substance: NIFEDIPINE
  3. LISINOPRIL. [Concomitant]
     Active Substance: LISINOPRIL
  4. DICYCLOMINE [Concomitant]
     Active Substance: DICYCLOMINE HYDROCHLORIDE
  5. BAYER ASPIRIN [Concomitant]
     Active Substance: ASPIRIN
  6. PRIMROSE [Concomitant]
  7. COQ10 [Concomitant]
     Active Substance: UBIDECARENONE
  8. CILOSTAZOL. [Concomitant]
     Active Substance: CILOSTAZOL
  9. VILODYSXOL [Concomitant]
  10. GARLIC SOFTGELS [Concomitant]

REACTIONS (10)
  - Abdominal pain upper [None]
  - Muscle spasms [None]
  - Abdominal discomfort [None]
  - Decreased appetite [None]
  - Vomiting [None]
  - Flatulence [None]
  - Insomnia [None]
  - Pollakiuria [None]
  - Nausea [None]
  - Abdominal distension [None]

NARRATIVE: CASE EVENT DATE: 20190411
